FAERS Safety Report 26123297 (Version 1)
Quarter: 2025Q4

REPORT INFORMATION
  Report Type: Spontaneous
  Country: CL (occurrence: CL)
  Receive Date: 20251204
  Receipt Date: 20251204
  Transmission Date: 20260118
  Serious: Yes (Hospitalization)
  Sender: JOHNSON AND JOHNSON
  Company Number: CL-JNJFOC-20251175583

PATIENT
  Sex: Male

DRUGS (1)
  1. SIMPONI [Suspect]
     Active Substance: GOLIMUMAB
     Indication: Colitis ulcerative
     Route: 058
     Dates: start: 202405

REACTIONS (8)
  - Cellulitis [Unknown]
  - Infection [Unknown]
  - Adverse event [Unknown]
  - Scratch [Unknown]
  - Pain in extremity [Recovering/Resolving]
  - Abdominal pain lower [Unknown]
  - Pain of skin [Unknown]
  - Anxiety [Unknown]

NARRATIVE: CASE EVENT DATE: 20240601
